FAERS Safety Report 6205958-6 (Version None)
Quarter: 2009Q2

REPORT INFORMATION
  Report Type: 
  Country: None (occurrence: None)
  Receive Date: 20090527
  Receipt Date: 20090527
  Transmission Date: 20091009
  Serious: Yes (Life-Threatening)
  Sender: FDA-Public Use
  Company Number: None

PATIENT
  Age: 3 Year
  Sex: Female
  Weight: 15.6 kg

DRUGS (1)
  1. HUMAN FIBRINOGEN CONCENTRATE 1100MG CSL BEHRING GMBH [Suspect]
     Indication: FACTOR I DEFICIENCY
     Dosage: 1100MG ONE TIME DOSE IV DRIP
     Route: 041
     Dates: start: 20090514, end: 20090514

REACTIONS (2)
  - CONFUSIONAL STATE [None]
  - MUSCULOSKELETAL DISORDER [None]
